FAERS Safety Report 19594708 (Version 2)
Quarter: 2021Q3

REPORT INFORMATION
  Report Type: Spontaneous
  Country: US (occurrence: US)
  Receive Date: 20210722
  Receipt Date: 20210728
  Transmission Date: 20211014
  Serious: Yes (Hospitalization)
  Sender: FDA-Public Use
  Company Number: US-TEVA-2021-US-1933583

PATIENT
  Age: 33 Year
  Sex: Female

DRUGS (2)
  1. PHENTERMINE. [Suspect]
     Active Substance: PHENTERMINE
     Indication: WEIGHT DECREASED
     Dosage: PILLS
     Route: 065
  2. PHENTERMINE. [Suspect]
     Active Substance: PHENTERMINE
     Indication: WEIGHT DECREASED
     Dosage: PILLS
     Route: 065

REACTIONS (2)
  - Substance-induced psychotic disorder [Recovered/Resolved]
  - Substance-induced mood disorder [Recovered/Resolved]
